FAERS Safety Report 10595998 (Version 2)
Quarter: 2014Q4

REPORT INFORMATION
  Report Type: Report from Study
  Country: CL (occurrence: CL)
  Receive Date: 20141120
  Receipt Date: 20141120
  Transmission Date: 20150529
  Serious: Yes (Hospitalization, Other)
  Sender: FDA-Public Use
  Company Number: CL-BRISTOL-MYERS SQUIBB COMPANY-19468776

PATIENT
  Age: 78 Year
  Sex: Female

DRUGS (9)
  1. FOLIC ACID. [Concomitant]
     Active Substance: FOLIC ACID
  2. CARDIOASPIRINE [Concomitant]
     Active Substance: ASPIRIN
  3. ORENCIA [Suspect]
     Active Substance: ABATACEPT
     Indication: RHEUMATOID ARTHRITIS
     Dosage: 2VAILS;750MG,3 VIALS,26JUN13-24OCT14
     Route: 042
     Dates: start: 20130626
  4. CELEBRA [Concomitant]
     Active Substance: CELECOXIB
  5. LOSARTAN [Concomitant]
     Active Substance: LOSARTAN
  6. METHOTREXATE SODIUM INJ [Concomitant]
     Active Substance: METHOTREXATE SODIUM
  7. PREDNISONE. [Concomitant]
     Active Substance: PREDNISONE
  8. OMEPRAZOLE. [Concomitant]
     Active Substance: OMEPRAZOLE
  9. LOSARTAN [Concomitant]
     Active Substance: LOSARTAN

REACTIONS (7)
  - Diarrhoea [Unknown]
  - Appendix disorder [Unknown]
  - Sternal fracture [Recovering/Resolving]
  - Vomiting [Unknown]
  - Rib fracture [Recovering/Resolving]
  - Fall [Unknown]
  - Urinary tract infection [Unknown]

NARRATIVE: CASE EVENT DATE: 201304
